FAERS Safety Report 24240226 (Version 2)
Quarter: 2024Q3

REPORT INFORMATION
  Report Type: Spontaneous
  Country: IT (occurrence: IT)
  Receive Date: 20240822
  Receipt Date: 20240906
  Transmission Date: 20241016
  Serious: Yes (Life-Threatening, Hospitalization)
  Sender: TEVA
  Company Number: IT-TEVA-VS-3234083

PATIENT
  Age: 74 Year
  Sex: Male

DRUGS (6)
  1. MOMETASONE [Suspect]
     Active Substance: MOMETASONE
     Indication: Sinusitis
     Dosage: FOR 20 DAYS
     Route: 065
  2. AMOXICILLIN [Suspect]
     Active Substance: AMOXICILLIN
     Indication: Antibiotic therapy
     Dosage: FOR 10 DAYS
     Route: 065
  3. DEXAMETHASONE [Suspect]
     Active Substance: DEXAMETHASONE
     Indication: COVID-19
     Dosage: 2 CAPSULE/DAY FOR 28DAYS
     Route: 065
  4. AZITHROMYCIN [Suspect]
     Active Substance: AZITHROMYCIN
     Indication: Antibiotic therapy
     Dosage: FOR 4 DAYS
     Route: 048
  5. ACETYLCYSTEINE [Concomitant]
     Active Substance: ACETYLCYSTEINE
     Indication: Sinusitis
     Dosage: FOR 17 DAYS
     Route: 065
  6. CEFDITOREN PIVOXIL [Suspect]
     Active Substance: CEFDITOREN PIVOXIL
     Indication: Antibiotic therapy
     Dosage: FOR 6 DAYS
     Route: 048

REACTIONS (4)
  - Mucormycosis [Recovered/Resolved]
  - Oro-pharyngeal aspergillosis [Recovered/Resolved]
  - Off label use [Unknown]
  - Osteonecrosis of jaw [Recovered/Resolved]
